FAERS Safety Report 17755581 (Version 1)
Quarter: 2020Q2

REPORT INFORMATION
  Report Type: Spontaneous
  Country: US (occurrence: US)
  Receive Date: 20200506
  Receipt Date: 20200506
  Transmission Date: 20200714
  Serious: No
  Sender: FDA-Public Use
  Company Number: None

PATIENT
  Age: 76 Year
  Sex: Male
  Weight: 87.75 kg

DRUGS (22)
  1. LASIX [Concomitant]
     Active Substance: FUROSEMIDE
  2. TYLENOL [Concomitant]
     Active Substance: ACETAMINOPHEN
  3. POTASSIUM CHLORIDE. [Concomitant]
     Active Substance: POTASSIUM CHLORIDE
  4. LORAZEPAM. [Concomitant]
     Active Substance: LORAZEPAM
  5. METOPROLOL ER [Concomitant]
     Active Substance: METOPROLOL SUCCINATE
  6. SLO MAG [Concomitant]
  7. GABAPENTIN. [Concomitant]
     Active Substance: GABAPENTIN
  8. ATOVAQUONE. [Concomitant]
     Active Substance: ATOVAQUONE
  9. PREDNISONE. [Concomitant]
     Active Substance: PREDNISONE
  10. CARDIZEM CD [Concomitant]
     Active Substance: DILTIAZEM HYDROCHLORIDE
  11. BACTRIM [Concomitant]
     Active Substance: SULFAMETHOXAZOLE\TRIMETHOPRIM
  12. NINLARO [Suspect]
     Active Substance: IXAZOMIB CITRATE
     Indication: PLASMA CELL MYELOMA
     Route: 048
     Dates: start: 20200326, end: 20200506
  13. ONDANSETRON [Concomitant]
     Active Substance: ONDANSETRON
  14. IMODIUM AD [Concomitant]
     Active Substance: LOPERAMIDE HYDROCHLORIDE
  15. IMMUNE SUPPORT [Concomitant]
  16. DEXAMETHASONE. [Concomitant]
     Active Substance: DEXAMETHASONE
  17. CYCLOPHOSPHAMIDE. [Concomitant]
     Active Substance: CYCLOPHOSPHAMIDE
  18. REVLIMID [Concomitant]
     Active Substance: LENALIDOMIDE
  19. LOMOTIL [Concomitant]
     Active Substance: ATROPINE SULFATE\DIPHENOXYLATE HYDROCHLORIDE
  20. CYANOCOBALAMIN. [Concomitant]
     Active Substance: CYANOCOBALAMIN
  21. CHOLESTYRAMINE. [Concomitant]
     Active Substance: CHOLESTYRAMINE
  22. ATORVASTATIN CALCIUM. [Concomitant]
     Active Substance: ATORVASTATIN CALCIUM

REACTIONS (1)
  - Disease progression [None]

NARRATIVE: CASE EVENT DATE: 20200506
